FAERS Safety Report 9203674 (Version 1)
Quarter: 2013Q1

REPORT INFORMATION
  Report Type: Spontaneous
  Country: US (occurrence: None)
  Receive Date: 20130329
  Receipt Date: 20130329
  Transmission Date: 20140127
  Serious: Yes (Other)
  Sender: FDA-Public Use
  Company Number: None

PATIENT
  Age: 26 Year
  Sex: Male
  Weight: 75.75 kg

DRUGS (3)
  1. INVEGA ER [Suspect]
     Dosage: 2 6 MG
  2. PALIPERIDONE [Concomitant]
  3. INVEGA [Concomitant]

REACTIONS (11)
  - Hypoaesthesia [None]
  - Restlessness [None]
  - Dyspnoea [None]
  - Nausea [None]
  - Vomiting [None]
  - Dizziness [None]
  - Dizziness [None]
  - Loss of consciousness [None]
  - Hypophagia [None]
  - Pain [None]
  - Ill-defined disorder [None]
